FAERS Safety Report 21513485 (Version 1)
Quarter: 2022Q4

REPORT INFORMATION
  Report Type: Spontaneous
  Country: US (occurrence: US)
  Receive Date: 20221027
  Receipt Date: 20221027
  Transmission Date: 20230112
  Serious: No
  Sender: FDA-Public Use
  Company Number: US-drreddys-SPO/USA/22/0155631

PATIENT
  Age: 35 Year

DRUGS (1)
  1. ZENATANE [Suspect]
     Active Substance: ISOTRETINOIN
     Indication: Acne
     Dosage: RMA ISSUE DATE: 19 APRIL 2022 03:03:07 PM, 20 MAY 2022 12:03:45 PM, 23 JUNE 2022 10:10:11 AM, 26 JUL

REACTIONS (1)
  - Adverse drug reaction [Unknown]
